FAERS Safety Report 22098033 (Version 2)
Quarter: 2023Q1

REPORT INFORMATION
  Report Type: Spontaneous
  Country: JP (occurrence: JP)
  Receive Date: 20230315
  Receipt Date: 20230324
  Transmission Date: 20230417
  Serious: Yes (Other)
  Sender: FDA-Public Use
  Company Number: JP-VIATRISJAPAN-2023M1025985AA

PATIENT
  Age: 76 Year
  Sex: Male
  Weight: 82 kg

DRUGS (12)
  1. ALPRAZOLAM [Suspect]
     Active Substance: ALPRAZOLAM
     Indication: Insomnia
     Dosage: 1 TABLET AT A TIME WHEN EXCITED
     Route: 048
  2. ALPRAZOLAM [Suspect]
     Active Substance: ALPRAZOLAM
     Indication: Agitation
  3. ALPRAZOLAM [Suspect]
     Active Substance: ALPRAZOLAM
     Indication: Poriomania
  4. DIAZEPAM [Suspect]
     Active Substance: DIAZEPAM
     Indication: Insomnia
     Dosage: 2 TABLETS AT A TIME, ONCE A DAY BEFORE BED
     Route: 048
  5. DIAZEPAM [Suspect]
     Active Substance: DIAZEPAM
     Indication: Agitation
     Dosage: 1.5 TABLETS AT A TIME, ONCE A DAY BEFORE BED
     Route: 048
  6. DIAZEPAM [Suspect]
     Active Substance: DIAZEPAM
     Indication: Poriomania
  7. BROTIZOLAM [Suspect]
     Active Substance: BROTIZOLAM
     Indication: Insomnia
     Dosage: 1 TABLET AT A TIME, ONCE A DAY BEFORE BED
     Route: 048
  8. BROTIZOLAM [Suspect]
     Active Substance: BROTIZOLAM
     Indication: Agitation
  9. BROTIZOLAM [Suspect]
     Active Substance: BROTIZOLAM
     Indication: Poriomania
  10. DONEPEZIL [Concomitant]
     Active Substance: DONEPEZIL
     Indication: Product used for unknown indication
     Dosage: 1 TABLET AT A TIME, ONCE A DAY AFTER DINNER
     Route: 048
  11. AZILSARTAN KAMEDOXOMIL [Concomitant]
     Active Substance: AZILSARTAN KAMEDOXOMIL
     Indication: Product used for unknown indication
     Dosage: 1 TABLET AT A TIME, ONCE A DAY AFTER DINNER
     Route: 048
  12. PITAVASTATIN [Concomitant]
     Active Substance: PITAVASTATIN
     Indication: Product used for unknown indication
     Dosage: 1 TABLET AT A TIME, ONCE A DAY AFTER DINNER
     Route: 048

REACTIONS (2)
  - Delirium [Unknown]
  - Therapeutic product effect incomplete [Unknown]
